FAERS Safety Report 6253720-0 (Version None)
Quarter: 2009Q2

REPORT INFORMATION
  Report Type: 
  Country: None (occurrence: None)
  Receive Date: 20090630
  Receipt Date: 20090616
  Transmission Date: 20091009
  Serious: No
  Sender: FDA-Public Use
  Company Number: 2009-196331-NL

PATIENT

DRUGS (6)
  1. REMERON [Suspect]
     Indication: DEPRESSION
     Dosage: 7.5 MG DAILY
     Dates: start: 20090330
  2. REMERON [Suspect]
     Indication: WEIGHT CONTROL
     Dosage: 7.5 MG DAILY
     Dates: start: 20090330
  3. TOPROL-XL [Concomitant]
  4. REGLAN [Concomitant]
  5. ASPIRIN [Concomitant]
  6. STOOL SOFTNER [Concomitant]

REACTIONS (3)
  - BLOOD PRESSURE DECREASED [None]
  - HEART RATE DECREASED [None]
  - VENTRICULAR EXTRASYSTOLES [None]
